FAERS Safety Report 25318827 (Version 1)
Quarter: 2025Q2

REPORT INFORMATION
  Report Type: Spontaneous
  Country: US (occurrence: None)
  Receive Date: 20250514
  Receipt Date: 20250514
  Transmission Date: 20250716
  Serious: Yes (Life-Threatening, Hospitalization)
  Sender: FDA-CTU
  Company Number: None

PATIENT
  Age: 70 Year
  Sex: Female
  Weight: 63 kg

DRUGS (18)
  1. IPRATROPIUM BROMIDE [Suspect]
     Active Substance: IPRATROPIUM BROMIDE
     Indication: Product used for unknown indication
     Dosage: 4 TIMES A DAY RESPIRATORY (INHALATION)?
     Route: 055
  2. Lynx [Concomitant]
  3. TACROLIMUS [Concomitant]
     Active Substance: TACROLIMUS
  4. evrolimus [Concomitant]
  5. PREDNISONE [Concomitant]
     Active Substance: PREDNISONE
  6. METOPROLOL [Concomitant]
     Active Substance: METOPROLOL
  7. AZITHROMYCIN [Concomitant]
     Active Substance: AZITHROMYCIN
  8. IRON [Concomitant]
     Active Substance: IRON
  9. VITAMIN C [Concomitant]
     Active Substance: ASCORBIC ACID
  10. b12 [Concomitant]
  11. VITAMIN D [Concomitant]
     Active Substance: VITAMIN D NOS
  12. OMEPRAZOLE [Concomitant]
     Active Substance: OMEPRAZOLE
  13. CALCIUM [Concomitant]
     Active Substance: CALCIUM
  14. IRON [Concomitant]
     Active Substance: IRON
  15. MAGNESIUM [Concomitant]
     Active Substance: MAGNESIUM
  16. FOLATE SODIUM [Concomitant]
     Active Substance: FOLATE SODIUM
  17. VITAMIN C [Concomitant]
     Active Substance: ASCORBIC ACID
  18. VITAMIN D [Concomitant]
     Active Substance: VITAMIN D NOS

REACTIONS (2)
  - Drug hypersensitivity [None]
  - Loss of consciousness [None]

NARRATIVE: CASE EVENT DATE: 20250414
